FAERS Safety Report 10348816 (Version 2)
Quarter: 2014Q3

REPORT INFORMATION
  Report Type: Spontaneous
  Country: US (occurrence: US)
  Receive Date: 20140729
  Receipt Date: 20140729
  Transmission Date: 20150326
  Serious: Yes (Other)
  Sender: FDA-Public Use
  Company Number: US-US-EMD SERONO, INC.-7012134

PATIENT
  Sex: Female

DRUGS (1)
  1. REBIF [Suspect]
     Active Substance: INTERFERON BETA-1A
     Indication: MULTIPLE SCLEROSIS
     Route: 058
     Dates: start: 20030401

REACTIONS (14)
  - Synovial cyst [Not Recovered/Not Resolved]
  - Spinal column stenosis [Recovering/Resolving]
  - Cholecystectomy [Unknown]
  - Post procedural complication [Unknown]
  - C-reactive protein increased [Unknown]
  - Injection site mass [Unknown]
  - Osteoarthritis [Unknown]
  - Ankle fracture [Not Recovered/Not Resolved]
  - Injection site pain [Unknown]
  - Osteopenia [Not Recovered/Not Resolved]
  - Injection site induration [Unknown]
  - Fatigue [Unknown]
  - Peripheral swelling [Unknown]
  - Neuropathy peripheral [Not Recovered/Not Resolved]

NARRATIVE: CASE EVENT DATE: 2003
